FAERS Safety Report 22594997 (Version 4)
Quarter: 2023Q2

REPORT INFORMATION
  Report Type: Spontaneous
  Country: PT (occurrence: PT)
  Receive Date: 20230613
  Receipt Date: 20230626
  Transmission Date: 20230722
  Serious: Yes (Hospitalization, Other)
  Sender: FDA-Public Use
  Company Number: PT-MYLANLABS-2023M1058044

PATIENT
  Age: 77 Year
  Sex: Female

DRUGS (4)
  1. EZETIMIBE [Suspect]
     Active Substance: EZETIMIBE
     Indication: Hypercholesterolaemia
     Dosage: 10 MG, UNKNOWN
     Route: 048
  2. EZETIMIBE [Suspect]
     Active Substance: EZETIMIBE
     Indication: Hepatic steatosis
  3. ATORVASTATIN [Suspect]
     Active Substance: ATORVASTATIN
     Indication: Hypercholesterolaemia
     Dosage: 40 MG, UNKNOWN
     Route: 048
  4. ATORVASTATIN [Suspect]
     Active Substance: ATORVASTATIN
     Indication: Hepatic steatosis

REACTIONS (9)
  - Hepatitis [Recovered/Resolved]
  - Primary biliary cholangitis [Recovered/Resolved]
  - Drug-induced liver injury [Recovered/Resolved]
  - Cholestasis [Recovered/Resolved]
  - Hyperbilirubinaemia [Recovered/Resolved]
  - Jaundice [Recovered/Resolved]
  - Malaise [Recovered/Resolved]
  - Vomiting [Recovered/Resolved]
  - Nausea [Recovered/Resolved]
